FAERS Safety Report 5096938-5 (Version None)
Quarter: 2006Q3

REPORT INFORMATION
  Report Type: 
  Country: None (occurrence: None)
  Receive Date: 20060906
  Receipt Date: 20060901
  Transmission Date: 20061208
  Serious: Yes (Hospitalization, Other)
  Sender: FDA-Public Use
  Company Number: US-JNJFOC-20060801122

PATIENT
  Sex: Female
  Weight: 58.97 kg

DRUGS (11)
  1. REMICADE [Suspect]
     Dosage: HAD 54 INFUSIONS UN UNKNOWN DATES
     Route: 042
  2. REMICADE [Suspect]
     Indication: RHEUMATOID ARTHRITIS
     Dosage: HAD 54 INFUSIONS UN UNKNOWN DATES
     Route: 042
  3. IMURAN [Concomitant]
     Indication: RHEUMATOID ARTHRITIS
  4. CALCIUM GLUCONATE [Concomitant]
     Indication: OSTEOPOROSIS
  5. CALCIUM GLUCONATE [Concomitant]
     Indication: RHEUMATOID ARTHRITIS
  6. PREDNISONE TAB [Concomitant]
     Indication: RHEUMATOID ARTHRITIS
  7. PROVERA [Concomitant]
     Indication: HORMONE REPLACEMENT THERAPY
  8. PREMARIN [Concomitant]
     Indication: HORMONE REPLACEMENT THERAPY
  9. VITAMIN D [Concomitant]
     Indication: OSTEOPOROSIS
     Dosage: 50,000 UNITS
  10. SULINDAC [Concomitant]
     Indication: RHEUMATOID ARTHRITIS
  11. CELEXA [Concomitant]
     Indication: DEPRESSION

REACTIONS (3)
  - METASTASES TO CENTRAL NERVOUS SYSTEM [None]
  - NON-SMALL CELL LUNG CANCER [None]
  - RENAL CELL CARCINOMA STAGE UNSPECIFIED [None]
